FAERS Safety Report 6085531-3 (Version None)
Quarter: 2009Q1

REPORT INFORMATION
  Report Type: 
  Country: None (occurrence: None)
  Receive Date: 20090220
  Receipt Date: 20090212
  Transmission Date: 20090719
  Serious: Yes (Death, Hospitalization)
  Sender: FDA-Public Use
  Company Number: US-AVENTIS-200911392GDDC

PATIENT
  Age: 76 Year
  Sex: Male
  Weight: 76 kg

DRUGS (4)
  1. TAXOTERE [Suspect]
     Indication: PROSTATE CANCER
     Route: 042
     Dates: start: 20081217, end: 20090128
  2. PREDNISONE [Suspect]
     Indication: PROSTATE CANCER
     Dosage: DOSE: 110 AS TOTAL DOSE THIS COURSE
     Route: 048
     Dates: start: 20081217
  3. CODE UNBROKEN [Suspect]
     Indication: PROSTATE CANCER
     Dosage: DOSE: 110 AS TOTAL DOSE THIS COURSE
     Route: 048
     Dates: start: 20081217, end: 20090207
  4. DEXAMETHASONE [Suspect]
     Dosage: DOSE: 10 TOTAL DOSE THIS COURSE
     Dates: start: 20081217, end: 20090128

REACTIONS (14)
  - ACIDOSIS [None]
  - CHILLS [None]
  - DYSPNOEA [None]
  - FATIGUE [None]
  - HYPERGLYCAEMIA [None]
  - HYPOCALCAEMIA [None]
  - HYPOTENSION [None]
  - HYPOXIA [None]
  - NAUSEA [None]
  - NEUTROPHIL COUNT DECREASED [None]
  - PLEURAL EFFUSION [None]
  - PNEUMOCYSTIS JIROVECI PNEUMONIA [None]
  - VOMITING [None]
  - WHITE BLOOD CELL COUNT DECREASED [None]
